FAERS Safety Report 20315989 (Version 1)
Quarter: 2022Q1

REPORT INFORMATION
  Report Type: Spontaneous
  Country: US (occurrence: None)
  Receive Date: 20220110
  Receipt Date: 20220110
  Transmission Date: 20220423
  Serious: No
  Sender: FDA-Public Use
  Company Number: US-ROCHE-2948141

PATIENT
  Sex: Female
  Weight: 97.156 kg

DRUGS (5)
  1. RITUXAN [Suspect]
     Active Substance: RITUXIMAB
     Indication: Neuromyelitis optica spectrum disorder
     Route: 065
     Dates: end: 2020
  2. ENSPRYNG [Suspect]
     Active Substance: SATRALIZUMAB-MWGE
     Indication: Neuromyelitis optica spectrum disorder
     Dosage: INJECTION IN STOMACH OR LEG
     Route: 058
     Dates: start: 202103
  3. AMLODIPINE [Concomitant]
     Active Substance: AMLODIPINE BESYLATE
     Indication: Hypertension
  4. METOPROLOL [Concomitant]
     Active Substance: METOPROLOL
     Indication: Palpitations
  5. METOPROLOL [Concomitant]
     Active Substance: METOPROLOL
     Indication: Hypertension

REACTIONS (4)
  - Hypothyroidism [Unknown]
  - Autoimmune thyroiditis [Unknown]
  - Accidental exposure to product [Unknown]
  - Off label use [Unknown]
